FAERS Safety Report 8143561-1 (Version None)
Quarter: 2012Q1

REPORT INFORMATION
  Report Type: 
  Country: None (occurrence: None)
  Receive Date: 20120217
  Receipt Date: 20111214
  Transmission Date: 20120608
  Serious: No
  Sender: FDA-Public Use
  Company Number: US-GLAXOSMITHKLINE-A0945201A

PATIENT
  Age: 61 Year
  Sex: Male

DRUGS (2)
  1. VOTRIENT [Suspect]
     Indication: RENAL CANCER
     Dosage: 800MG PER DAY
     Route: 065
  2. IMODIUM [Suspect]
     Indication: DIARRHOEA
     Route: 065

REACTIONS (8)
  - BLISTER [None]
  - ERYTHEMA [None]
  - BURNING SENSATION [None]
  - CONSTIPATION [None]
  - BLOOD PRESSURE INCREASED [None]
  - HEADACHE [None]
  - ANAL FISTULA [None]
  - DIARRHOEA [None]
